FAERS Safety Report 4435233-1 (Version None)
Quarter: 2004Q3

REPORT INFORMATION
  Report Type: 
  Country: None (occurrence: None)
  Receive Date: 20040827
  Receipt Date: 20040720
  Transmission Date: 20050211
  Serious: Yes (Hospitalization)
  Sender: FDA-Public Use
  Company Number: JP-GLAXOSMITHKLINE-B0340347A

PATIENT
  Age: 63 Year
  Sex: Male
  Weight: 61 kg

DRUGS (19)
  1. ALKERAN [Suspect]
     Indication: MULTIPLE MYELOMA
     Dosage: 80MG TWICE PER DAY
     Route: 042
     Dates: start: 20040523, end: 20040525
  2. ZOVIRAX [Suspect]
     Indication: INFECTION PROPHYLAXIS
     Dosage: 200MG FIVE TIMES PER DAY
     Route: 048
     Dates: start: 20040514
  3. BAKTAR [Suspect]
     Indication: INFECTION PROPHYLAXIS
     Dosage: 2TAB THREE TIMES PER WEEK
     Route: 048
     Dates: start: 20040514
  4. CRAVIT [Suspect]
     Indication: INFECTION PROPHYLAXIS
     Dosage: 200MG THREE TIMES PER DAY
     Route: 048
     Dates: start: 20040514
  5. DIFLUCAN [Suspect]
     Indication: INFECTION PROPHYLAXIS
     Dosage: 200MG PER DAY
     Route: 048
     Dates: start: 20040514
  6. VANCOMYCIN HYDROCHLORIDE [Suspect]
     Indication: INFECTION PROPHYLAXIS
     Dosage: .5G FOUR TIMES PER DAY
     Route: 048
     Dates: start: 20040514
  7. SEROTONE [Concomitant]
     Dosage: 2UNIT PER DAY
     Route: 042
     Dates: start: 20040523, end: 20040526
  8. URSO [Concomitant]
     Indication: LIVER DISORDER
     Dosage: 600MG PER DAY
     Route: 048
     Dates: start: 20040222
  9. GASTER D [Concomitant]
     Indication: GASTRIC ULCER
     Dosage: 20MG PER DAY
     Route: 048
     Dates: start: 20040514
  10. MUCOSTA [Concomitant]
     Indication: GASTRIC ULCER
     Dosage: 300MG PER DAY
     Route: 048
  11. TOBRACIN [Concomitant]
     Indication: INFECTION PROPHYLAXIS
     Dosage: 60MG PER DAY
     Route: 055
     Dates: start: 20040514
  12. ISODINE GARGLE [Concomitant]
     Indication: INFECTION PROPHYLAXIS
     Route: 002
     Dates: start: 20040514
  13. FUNGIZONE [Concomitant]
     Indication: INFECTION PROPHYLAXIS
     Route: 002
     Dates: start: 20040515
  14. CRAVIT [Concomitant]
     Route: 031
     Dates: start: 20040515
  15. ZYLORIC [Concomitant]
     Dosage: 300MG PER DAY
     Route: 048
     Dates: start: 20030812, end: 20040525
  16. BROACT [Concomitant]
     Indication: INFECTION
     Dosage: 2000MG PER DAY
     Route: 042
  17. SAXIZON [Concomitant]
     Dosage: 100MG PER DAY
     Dates: start: 20040525, end: 20040526
  18. DIAMOX [Concomitant]
     Indication: POLYURIA
     Dosage: 500MG PER DAY
     Route: 065
     Dates: start: 20040525, end: 20040525
  19. MANNIGEN [Concomitant]
     Indication: POLYURIA
     Dosage: 200ML PER DAY
     Route: 042
     Dates: start: 20040525, end: 20040525

REACTIONS (5)
  - ERYTHEMA [None]
  - OLIGURIA [None]
  - PYREXIA [None]
  - RASH [None]
  - RENAL IMPAIRMENT [None]
